FAERS Safety Report 17475896 (Version 1)
Quarter: 2020Q1

REPORT INFORMATION
  Report Type: Spontaneous
  Country: US (occurrence: US)
  Receive Date: 20200228
  Receipt Date: 20200228
  Transmission Date: 20200409
  Serious: No
  Sender: FDA-Public Use
  Company Number: US-TEVA-2020-US-1190964

PATIENT
  Age: 52 Year
  Sex: Female

DRUGS (3)
  1. DILTIAZEM HYDROCHLORIDE. [Suspect]
     Active Substance: DILTIAZEM HYDROCHLORIDE
     Dosage: 30 MG 3-4 TIMES A DAY
     Route: 065
  2. DILTIAZEM HYDROCHLORIDE. [Suspect]
     Active Substance: DILTIAZEM HYDROCHLORIDE
     Dosage: 180 MILLIGRAM DAILY; REGULAR RELEASE
     Route: 065
  3. DILTIAZEM HYDROCHLORIDE. [Suspect]
     Active Substance: DILTIAZEM HYDROCHLORIDE
     Indication: ATRIAL FIBRILLATION
     Dosage: EXTENDED-RELEASE DILTIAZEM TABLETS
     Route: 065
     Dates: start: 201905

REACTIONS (6)
  - Oedema peripheral [Recovering/Resolving]
  - Heart rate decreased [Unknown]
  - Hypotension [Unknown]
  - Gingival hypertrophy [Not Recovered/Not Resolved]
  - Product dose omission [Unknown]
  - Dizziness postural [Unknown]

NARRATIVE: CASE EVENT DATE: 2019
